FAERS Safety Report 26006903 (Version 1)
Quarter: 2025Q4

REPORT INFORMATION
  Report Type: Spontaneous
  Country: US (occurrence: None)
  Receive Date: 20251105
  Receipt Date: 20251105
  Transmission Date: 20260119
  Serious: Yes (Hospitalization, Disabling)
  Sender: FDA-CTU
  Company Number: None

PATIENT
  Age: 55 Year
  Sex: Male
  Weight: 71.4 kg

DRUGS (2)
  1. BREYANZI [Suspect]
     Active Substance: LISOCABTAGENE MARALEUCEL
     Dosage: OTHER FREQUENCY : ONCE;?
     Route: 041
     Dates: start: 20250702, end: 20250702
  2. BREYANZI [Suspect]
     Active Substance: LISOCABTAGENE MARALEUCEL
     Dosage: OTHER FREQUENCY : ONCE;?
     Route: 041
     Dates: start: 20250702, end: 20250702

REACTIONS (7)
  - Pancytopenia [None]
  - Facial paralysis [None]
  - Hypoaesthesia [None]
  - Paraesthesia [None]
  - Cranial nerve paralysis [None]
  - Neoplasm progression [None]
  - Bell^s palsy [None]

NARRATIVE: CASE EVENT DATE: 20250702
